FAERS Safety Report 6983502-3 (Version None)
Quarter: 2010Q3

REPORT INFORMATION
  Report Type: 
  Country: None (occurrence: None)
  Receive Date: 20100914
  Receipt Date: 20080707
  Transmission Date: 20110219
  Serious: No
  Sender: FDA-Public Use
  Company Number: US-WYE-H04918908

PATIENT
  Age: 52 Year
  Sex: Female
  Weight: 73.55 kg

DRUGS (5)
  1. ADVIL LIQUI-GELS [Suspect]
     Indication: PAIN
     Route: 048
     Dates: start: 20080601, end: 20080601
  2. ADVIL LIQUI-GELS [Suspect]
     Dosage: UNKNOWN
     Route: 048
     Dates: start: 20080701, end: 20080701
  3. KLONOPIN [Concomitant]
  4. TRAZODONE HCL [Concomitant]
  5. WELLBUTRIN [Concomitant]

REACTIONS (2)
  - PRURITUS GENERALISED [None]
  - VAGINAL SWELLING [None]
